FAERS Safety Report 18276843 (Version 1)
Quarter: 2020Q3

REPORT INFORMATION
  Report Type: Spontaneous
  Country: US (occurrence: US)
  Receive Date: 20200917
  Receipt Date: 20200917
  Transmission Date: 20201103
  Serious: Yes (Hospitalization)
  Sender: FDA-Public Use
  Company Number: US-ELI_LILLY_AND_COMPANY-US202009003645

PATIENT
  Age: 52 Year
  Sex: Female

DRUGS (4)
  1. HUMULIN R [Suspect]
     Active Substance: INSULIN HUMAN
     Indication: TYPE 1 DIABETES MELLITUS
     Dosage: 1?5 U, PRN
     Route: 065
  2. LEVEMIR [Concomitant]
     Active Substance: INSULIN DETEMIR
     Indication: TYPE 1 DIABETES MELLITUS
     Dosage: 19 U, UNKNOWN
  3. INSULIN  LISPRO [Suspect]
     Active Substance: INSULIN LISPRO
     Dosage: 1?5 U, PRN
     Route: 058
     Dates: end: 20200905
  4. INSULIN  LISPRO [Suspect]
     Active Substance: INSULIN LISPRO
     Indication: TYPE 1 DIABETES MELLITUS
     Dosage: 1?5 U, PRN
     Route: 058
     Dates: start: 202001

REACTIONS (7)
  - Disturbance in attention [Recovered/Resolved]
  - Reading disorder [Recovered/Resolved]
  - Ocular rosacea [Not Recovered/Not Resolved]
  - Drug hypersensitivity [Recovered/Resolved]
  - Dizziness [Recovered/Resolved]
  - Feeling abnormal [Recovered/Resolved]
  - Blood glucose increased [Unknown]

NARRATIVE: CASE EVENT DATE: 202004
